FAERS Safety Report 4835572-6 (Version None)
Quarter: 2005Q4

REPORT INFORMATION
  Report Type: 
  Country: None (occurrence: None)
  Receive Date: 20051121
  Receipt Date: 20051109
  Transmission Date: 20060501
  Serious: Yes (Hospitalization)
  Sender: FDA-Public Use
  Company Number: WAES 0511USA01385

PATIENT
  Age: 83 Year
  Sex: Female
  Weight: 28.123 kg

DRUGS (10)
  1. PRINIVIL [Suspect]
     Indication: CARDIAC FAILURE CONGESTIVE
     Dosage: 10 MG DAILY PO
     Route: 048
     Dates: start: 20050616, end: 20050930
  2. DURAGESIC-100 [Suspect]
     Indication: PAIN
     Dosage: 25 MIGROGM/QOD/TOP
     Route: 061
     Dates: start: 20050508, end: 20050930
  3. INJ BLINDED THERAPY [Suspect]
     Indication: CARDIAC FAILURE
     Dosage: 2.8 ML/QH/IV
     Route: 042
     Dates: start: 20050926
  4. INJ BLINDED THERAPY [Suspect]
     Indication: CARDIAC FAILURE
     Dosage: 9.38 ML 1X IV
     Route: 042
     Dates: start: 20050929, end: 20050929
  5. BUMEX [Concomitant]
  6. PROPACET 100 [Concomitant]
  7. SYNTHROID [Concomitant]
  8. AMIODARONE [Concomitant]
  9. DIGOXIN [Concomitant]
  10. POTASSIUM CHLORIDE [Concomitant]

REACTIONS (7)
  - BLOOD CREATININE INCREASED [None]
  - CARDIOACTIVE DRUG LEVEL INCREASED [None]
  - CAROTID ARTERY STENOSIS [None]
  - DRUG ADMINISTRATION ERROR [None]
  - HYPOTENSION [None]
  - MENTAL STATUS CHANGES [None]
  - VENTRICULAR DYSFUNCTION [None]
